FAERS Safety Report 16938533 (Version 1)
Quarter: 2019Q4

REPORT INFORMATION
  Report Type: Spontaneous
  Country: VN (occurrence: VN)
  Receive Date: 20191019
  Receipt Date: 20191019
  Transmission Date: 20200122
  Serious: Yes (Other)
  Sender: FDA-Public Use
  Company Number: NVSC2019VN003652

PATIENT
  Age: 68 Year
  Sex: Male

DRUGS (1)
  1. SECUKINUMAB. [Suspect]
     Active Substance: SECUKINUMAB
     Indication: PSORIASIS
     Dosage: UNK
     Route: 065

REACTIONS (21)
  - Lymphocyte count increased [Unknown]
  - Nail discolouration [Unknown]
  - Dry skin [Recovering/Resolving]
  - Onycholysis [Unknown]
  - Dermatitis exfoliative generalised [Recovering/Resolving]
  - Skin papilloma [Recovering/Resolving]
  - Insomnia [Unknown]
  - Skin lesion [Recovering/Resolving]
  - Erythema [Unknown]
  - Peripheral swelling [Unknown]
  - Screaming [Unknown]
  - Hyperkeratosis [Unknown]
  - Papule [Unknown]
  - Crying [Unknown]
  - Pruritus [Recovering/Resolving]
  - Pain in extremity [Unknown]
  - Eczema [Unknown]
  - Anxiety disorder [Recovering/Resolving]
  - Blood immunoglobulin E increased [Unknown]
  - Eosinophilia [Unknown]
  - Psoriasis [Unknown]
